FAERS Safety Report 4821598-5 (Version None)
Quarter: 2005Q4

REPORT INFORMATION
  Report Type: 
  Country: None (occurrence: None)
  Receive Date: 20051103
  Receipt Date: 20051103
  Transmission Date: 20060501
  Serious: Yes (Other)
  Sender: FDA-Public Use
  Company Number: None

PATIENT
  Sex: Male

DRUGS (4)
  1. GUANFACINE HCL [Suspect]
     Indication: AUTISM
     Dosage: 3 MG AM 12 PM + 1 1/2 PM PO
     Route: 048
     Dates: start: 20011016
  2. LITHOBID [Concomitant]
  3. RISPERDAL [Concomitant]
  4. BENETROPINE [Concomitant]

REACTIONS (3)
  - AGGRESSION [None]
  - DRUG EFFECT DECREASED [None]
  - THERAPEUTIC RESPONSE UNEXPECTED WITH DRUG SUBSTITUTION [None]
